FAERS Safety Report 23061230 (Version 1)
Quarter: 2023Q4

REPORT INFORMATION
  Report Type: Spontaneous
  Country: US (occurrence: US)
  Receive Date: 20231013
  Receipt Date: 20231013
  Transmission Date: 20240109
  Serious: No
  Sender: FDA-Public Use
  Company Number: US-Accord-355743

PATIENT
  Sex: Female
  Weight: 89.81 kg

DRUGS (1)
  1. GLIMEPIRIDE [Suspect]
     Active Substance: GLIMEPIRIDE
     Indication: Diabetes mellitus
     Dosage: STRENGTH: 4MG, DOSE: 4MG TWICE DAILY, (1 WITH BREAKFAST IN MORNING AND 1 WITH DINNER IN EVENING)
     Route: 048

REACTIONS (2)
  - Blood glucose fluctuation [Recovering/Resolving]
  - Recalled product administered [Unknown]
